FAERS Safety Report 9020464 (Version 1)
Quarter: 2013Q1

REPORT INFORMATION
  Report Type: Spontaneous
  Country: US (occurrence: US)
  Receive Date: 20130119
  Receipt Date: 20130119
  Transmission Date: 20140127
  Serious: No
  Sender: FDA-Public Use
  Company Number: US-ALLERGAN-1208075US

PATIENT
  Age: 34 Year
  Sex: Female

DRUGS (4)
  1. BOTOX COSMETIC [Suspect]
     Indication: SKIN WRINKLING
     Dosage: 35 UNITS, SINGLE
     Route: 030
     Dates: start: 20120518, end: 20120518
  2. BOTOX COSMETIC [Suspect]
     Indication: SKIN WRINKLING
     Dosage: UNK
     Route: 030
     Dates: start: 201202, end: 201202
  3. BOTOX COSMETIC [Suspect]
     Indication: SKIN WRINKLING
  4. TOPAMAX [Concomitant]
     Indication: MIGRAINE
     Route: 048

REACTIONS (4)
  - Rash maculo-papular [Not Recovered/Not Resolved]
  - Wrong technique in drug usage process [Unknown]
  - Rash maculo-papular [Not Recovered/Not Resolved]
  - Hypersensitivity [Not Recovered/Not Resolved]
